FAERS Safety Report 7870879-X (Version None)
Quarter: 2011Q4

REPORT INFORMATION
  Report Type: 
  Country: None (occurrence: None)
  Receive Date: 20111029
  Receipt Date: 20110218
  Transmission Date: 20120403
  Serious: Yes (Hospitalization)
  Sender: FDA-Public Use
  Company Number: US-AMGEN-USASP2011009661

PATIENT
  Age: 59 Year
  Sex: Female

DRUGS (1)
  1. ENBREL [Suspect]
     Indication: PSORIATIC ARTHROPATHY
     Dates: start: 20020101, end: 20101208

REACTIONS (8)
  - MASTITIS BACTERIAL [None]
  - SALMONELLOSIS [None]
  - PERIPHERAL NERVE TRANSPOSITION [None]
  - IMPAIRED HEALING [None]
  - WOUND SECRETION [None]
  - JOINT CONTRACTURE [None]
  - MONARTHRITIS [None]
  - EXOSTOSIS [None]
